FAERS Safety Report 14978878 (Version 27)
Quarter: 2019Q3

REPORT INFORMATION
  Report Type: Spontaneous
  Country: FR (occurrence: FR)
  Receive Date: 20180606
  Receipt Date: 20190916
  Transmission Date: 20191004
  Serious: Yes (Other)
  Sender: FDA-Public Use
  Company Number: FR-ELI_LILLY_AND_COMPANY-FR201804004797

PATIENT
  Weight: 1.89 kg

DRUGS (128)
  1. FORLAX [Suspect]
     Active Substance: POLYETHYLENE GLYCOL 4000
     Indication: CONSTIPATION
     Dosage: 1 DF, DAILY
     Route: 064
     Dates: start: 20160930, end: 20170405
  2. ARIPIPRAZOLE. [Suspect]
     Active Substance: ARIPIPRAZOLE
     Dosage: 10 MG, DAILY
     Route: 064
     Dates: start: 20170224
  3. GLICLAZIDE [Suspect]
     Active Substance: GLICLAZIDE
     Indication: TYPE 2 DIABETES MELLITUS
     Dosage: 120 MG, DAILY
     Route: 064
     Dates: start: 20160930, end: 20170224
  4. TRAMADOL HYDROCHLORIDE. [Suspect]
     Active Substance: TRAMADOL HYDROCHLORIDE
     Indication: DIABETIC NEUROPATHY
     Dosage: 100 MG, DAILY
     Route: 064
     Dates: start: 20160930, end: 20170306
  5. TRAMADOL HYDROCHLORIDE. [Suspect]
     Active Substance: TRAMADOL HYDROCHLORIDE
     Dosage: 50 MG, DAILY
     Route: 064
     Dates: start: 20170306
  6. NICARDIPINE HYDROCHLORIDE. [Suspect]
     Active Substance: NICARDIPINE HYDROCHLORIDE
     Dosage: 50 MG, UNKNOWN
     Route: 064
     Dates: start: 20170405, end: 20170914
  7. LOXEN                              /00639802/ [Suspect]
     Active Substance: NICARDIPINE HYDROCHLORIDE
     Dosage: 01 DF, DAILY
     Route: 064
     Dates: start: 20170313, end: 20170405
  8. LEVEMIR [Suspect]
     Active Substance: INSULIN DETEMIR
     Indication: TYPE 2 DIABETES MELLITUS
     Dosage: 10 IU, ONCE DAILY (QD)
     Route: 064
     Dates: start: 20160930, end: 20170224
  9. LARGACTIL                          /00011901/ [Suspect]
     Active Substance: CHLORPROMAZINE
     Indication: BIPOLAR I DISORDER
     Dosage: 25 MG, DAILY
     Route: 064
     Dates: start: 20170720
  10. LASIX [Suspect]
     Active Substance: FUROSEMIDE
     Indication: HYPERTENSION
     Dosage: 40 MG, UNKNOWN
     Route: 064
     Dates: start: 20170516
  11. GABAPENTINE [Suspect]
     Active Substance: GABAPENTIN
     Dosage: 80 MG, ONCE DAILY (QD)
     Route: 048
     Dates: start: 20160930
  12. GABAPENTINE [Suspect]
     Active Substance: GABAPENTIN
     Dosage: 400 MG, DAILY
     Route: 064
     Dates: start: 20160930
  13. AMOXICILLINE                       /00249603/ [Suspect]
     Active Substance: AMOXICILLIN SODIUM
     Dosage: 1 G, DAILY
     Route: 064
     Dates: start: 201708, end: 20170914
  14. FOLINIC ACID [Suspect]
     Active Substance: LEUCOVORIN
     Indication: NORMOCHROMIC NORMOCYTIC ANAEMIA
     Dosage: 5 MG, ONCE DAILY (QD)
     Route: 064
     Dates: start: 20170224, end: 20170313
  15. METFORMIN [Suspect]
     Active Substance: METFORMIN HYDROCHLORIDE
     Dosage: 850 MG, DAILY
     Route: 064
     Dates: start: 20160930, end: 20170224
  16. METFORMIN [Suspect]
     Active Substance: METFORMIN HYDROCHLORIDE
     Dosage: 1700 MG, DAILY
     Route: 064
     Dates: start: 20170804
  17. HUMALOG [Suspect]
     Active Substance: INSULIN LISPRO
     Indication: TYPE 2 DIABETES MELLITUS
     Dosage: 21 UG/M2, DAILY
     Route: 064
     Dates: start: 20170224, end: 20170914
  18. HUMALOG [Suspect]
     Active Substance: INSULIN LISPRO
     Dosage: 7 UG/M2, DAILY
     Route: 064
     Dates: start: 20170224, end: 20170224
  19. FORLAX [Suspect]
     Active Substance: POLYETHYLENE GLYCOL 4000
     Indication: TYPE 2 DIABETES MELLITUS
     Dosage: 1 DF, DAILY
     Route: 064
     Dates: start: 20170313
  20. ARIPIPRAZOLE. [Suspect]
     Active Substance: ARIPIPRAZOLE
     Indication: BIPOLAR I DISORDER
     Dosage: 10 MG, DAILY
     Route: 064
     Dates: start: 20160930, end: 20170224
  21. ARIPIPRAZOLE. [Suspect]
     Active Substance: ARIPIPRAZOLE
     Dosage: 10 MG, DAILY
     Route: 064
     Dates: start: 20170224
  22. GLICLAZIDE [Suspect]
     Active Substance: GLICLAZIDE
     Dosage: 120 MG, DAILY
     Route: 064
     Dates: start: 20170224
  23. FOLIC ACID. [Suspect]
     Active Substance: FOLIC ACID
     Dosage: 5 MG, DAILY
     Route: 064
     Dates: start: 20170224, end: 20170914
  24. TRAMADOL HYDROCHLORIDE. [Suspect]
     Active Substance: TRAMADOL HYDROCHLORIDE
     Dosage: 50 MG, DAILY
     Route: 064
     Dates: start: 20160930, end: 20170306
  25. TRAMADOL HYDROCHLORIDE. [Suspect]
     Active Substance: TRAMADOL HYDROCHLORIDE
     Dosage: 50 MG, DAILY
     Route: 064
     Dates: start: 20170306
  26. LOXEN                              /00639802/ [Suspect]
     Active Substance: NICARDIPINE HYDROCHLORIDE
     Indication: HYPERTENSION
     Dosage: 100 MG, UNKNOWN
     Route: 064
     Dates: start: 20170313, end: 20170405
  27. LOXEN                              /00639802/ [Suspect]
     Active Substance: NICARDIPINE HYDROCHLORIDE
     Dosage: UNK, UNKNOWN
     Route: 064
     Dates: start: 20170516
  28. LASIX [Suspect]
     Active Substance: FUROSEMIDE
     Dosage: 50 MG, UNKNOWN
     Route: 064
     Dates: start: 201705
  29. DIFFU-K [Suspect]
     Active Substance: POTASSIUM CHLORIDE
     Dosage: 3600 MG, UNKNOWN
     Route: 064
     Dates: start: 20170804
  30. GABAPENTINE [Suspect]
     Active Substance: GABAPENTIN
     Dosage: 80 MG, ONCE DAILY (QD)
     Route: 048
     Dates: start: 20160930
  31. GABAPENTINE [Suspect]
     Active Substance: GABAPENTIN
     Dosage: 400 MG, DAILY
     Route: 064
     Dates: start: 20160930
  32. METFORMIN [Suspect]
     Active Substance: METFORMIN HYDROCHLORIDE
     Indication: TYPE 2 DIABETES MELLITUS
     Dosage: 1700 MG, DAILY
     Route: 064
     Dates: start: 20160930, end: 20170224
  33. METFORMIN [Suspect]
     Active Substance: METFORMIN HYDROCHLORIDE
     Dosage: 1700 MG, DAILY
     Route: 064
     Dates: start: 20170804
  34. METFORMIN [Suspect]
     Active Substance: METFORMIN HYDROCHLORIDE
     Dosage: 850 MG, DAILY
     Route: 064
     Dates: start: 20170224
  35. HUMALOG [Suspect]
     Active Substance: INSULIN LISPRO
     Indication: TYPE 2 DIABETES MELLITUS
     Dosage: 21 UG/M2, DAILY
     Route: 064
     Dates: start: 20170224, end: 20170914
  36. FOLIC ACID. [Suspect]
     Active Substance: FOLIC ACID
     Dosage: 5 MG, DAILY
     Route: 064
     Dates: start: 20170313, end: 20170313
  37. FOLIC ACID. [Suspect]
     Active Substance: FOLIC ACID
     Dosage: 5 MG, DAILY
     Route: 064
     Dates: start: 20170313, end: 20170313
  38. FOLIC ACID. [Suspect]
     Active Substance: FOLIC ACID
     Dosage: 5 MG, DAILY
     Route: 064
     Dates: start: 20170224, end: 20170914
  39. LOXEN                              /00639802/ [Suspect]
     Active Substance: NICARDIPINE HYDROCHLORIDE
     Indication: HYPERTENSION
     Dosage: 100 MG, UNKNOWN
     Route: 064
     Dates: start: 20170313, end: 20170405
  40. METHYLDOPA MSD [Suspect]
     Active Substance: METHYLDOPA
     Indication: HYPERTENSION
     Dosage: 1500 MG, DAILY
     Route: 064
     Dates: start: 20170720
  41. LEVEMIR [Suspect]
     Active Substance: INSULIN DETEMIR
     Indication: TYPE 2 DIABETES MELLITUS
     Dosage: 10 IU, ONCE DAILY (QD)
     Route: 064
     Dates: start: 20160930, end: 20170224
  42. LAROXYL [Suspect]
     Active Substance: AMITRIPTYLINE HYDROCHLORIDE
     Dosage: 2 DF, ONCE DAILY (QD)
     Dates: start: 20160930
  43. LANTUS [Suspect]
     Active Substance: INSULIN GLARGINE
     Indication: TYPE 2 DIABETES MELLITUS
     Dosage: 20 IU, DAILY
     Route: 064
     Dates: start: 20170224, end: 20170914
  44. LARGACTIL                          /00011901/ [Suspect]
     Active Substance: CHLORPROMAZINE
     Indication: HYPERTENSION
     Dosage: 0.5 DF, UNKNOWN
     Route: 064
  45. LASIX [Suspect]
     Active Substance: FUROSEMIDE
     Dosage: 50 MG, UNKNOWN
     Route: 064
     Dates: start: 201705
  46. DIFFU-K [Suspect]
     Active Substance: POTASSIUM CHLORIDE
     Indication: HYPOKALAEMIA
     Dosage: 1200 MG, 2 TO 3 TIMES PER DAY
     Route: 064
     Dates: start: 20170804
  47. DIFFU-K [Suspect]
     Active Substance: POTASSIUM CHLORIDE
     Indication: HYPOKALAEMIA
     Dosage: 1200 MG, 2 TO 3 TIMES PER DAY
     Route: 064
     Dates: start: 20170804
  48. AMOXICILLINE                       /00249603/ [Suspect]
     Active Substance: AMOXICILLIN SODIUM
     Indication: PRODUCT USED FOR UNKNOWN INDICATION
     Dosage: 3 G, DAILY
     Route: 064
     Dates: start: 20170804, end: 20170811
  49. AMOXICILLINE                       /00249603/ [Suspect]
     Active Substance: AMOXICILLIN SODIUM
     Dosage: 3 G, DAILY
     Route: 064
     Dates: start: 20170804, end: 20170804
  50. FOLINIC ACID [Suspect]
     Active Substance: LEUCOVORIN
     Indication: NORMOCHROMIC NORMOCYTIC ANAEMIA
     Dosage: 5 MG, ONCE DAILY (QD)
     Route: 064
     Dates: start: 20170224, end: 20170313
  51. METFORMIN [Suspect]
     Active Substance: METFORMIN HYDROCHLORIDE
     Indication: TYPE 2 DIABETES MELLITUS
     Dosage: 1700 MG, DAILY
     Route: 064
     Dates: start: 20160930, end: 20170224
  52. INSULIN [Suspect]
     Active Substance: INSULIN NOS
     Indication: TYPE 2 DIABETES MELLITUS
     Dosage: UNK
     Route: 064
     Dates: start: 20161230, end: 20170224
  53. PROPANOLOL HYDROCHLORIDE [Suspect]
     Active Substance: PROPRANOLOL HYDROCHLORIDE
     Dosage: 25 MG, DAILY
     Route: 064
     Dates: start: 20170720
  54. HUMALOG [Suspect]
     Active Substance: INSULIN LISPRO
     Dosage: 7 UG/M2, DAILY
     Route: 064
     Dates: start: 20170224, end: 20170224
  55. FORLAX [Suspect]
     Active Substance: POLYETHYLENE GLYCOL 4000
     Indication: CONSTIPATION
     Dosage: 1 DF, DAILY
     Route: 064
     Dates: start: 20160930, end: 20170405
  56. FORLAX [Suspect]
     Active Substance: POLYETHYLENE GLYCOL 4000
     Indication: NORMOCHROMIC NORMOCYTIC ANAEMIA
     Dosage: 120 MG, DAILY
     Route: 064
     Dates: start: 20160930, end: 20170224
  57. RAMIPRIL. [Suspect]
     Active Substance: RAMIPRIL
     Dosage: 2.5 MG, DAILY
     Route: 064
     Dates: start: 20170224
  58. FOLIC ACID. [Suspect]
     Active Substance: FOLIC ACID
     Indication: NORMOCHROMIC NORMOCYTIC ANAEMIA
     Dosage: 5 MG, DAILY
     Route: 064
     Dates: start: 20170224, end: 20170313
  59. TRAMADOL HYDROCHLORIDE. [Suspect]
     Active Substance: TRAMADOL HYDROCHLORIDE
     Indication: DIABETIC NEUROPATHY
     Dosage: 100 MG, DAILY
     Route: 064
     Dates: start: 20160930, end: 20170306
  60. TRAMADOL HYDROCHLORIDE. [Suspect]
     Active Substance: TRAMADOL HYDROCHLORIDE
     Dosage: 50 MG, DAILY
     Route: 064
     Dates: start: 20160930, end: 20170306
  61. LOXEN                              /00639802/ [Suspect]
     Active Substance: NICARDIPINE HYDROCHLORIDE
     Dosage: 50 MG, UNKNOWN
     Route: 064
     Dates: start: 20170313, end: 20170405
  62. LOXEN                              /00639802/ [Suspect]
     Active Substance: NICARDIPINE HYDROCHLORIDE
     Dosage: 50 MG, UNKNOWN
     Route: 064
     Dates: start: 20170313, end: 20170405
  63. LOXEN                              /00639802/ [Suspect]
     Active Substance: NICARDIPINE HYDROCHLORIDE
     Dosage: 01 DF, DAILY
     Route: 064
     Dates: start: 20170313, end: 20170405
  64. LOXEN                              /00639802/ [Suspect]
     Active Substance: NICARDIPINE HYDROCHLORIDE
     Dosage: UNK, UNKNOWN
     Route: 064
     Dates: start: 20170516
  65. METHYLDOPA MSD [Suspect]
     Active Substance: METHYLDOPA
     Dosage: 15000 MG, ONCE DAILY (QD)
     Route: 048
     Dates: start: 20170720
  66. METHYLDOPA MSD [Suspect]
     Active Substance: METHYLDOPA
     Dosage: 500 MG, DAILY
     Route: 064
     Dates: start: 20170720
  67. LAROXYL [Suspect]
     Active Substance: AMITRIPTYLINE HYDROCHLORIDE
     Indication: DIABETIC NEUROPATHY
     Dosage: 2 DF, DAILY
     Route: 064
     Dates: start: 20160930, end: 20170914
  68. DIFFU-K [Suspect]
     Active Substance: POTASSIUM CHLORIDE
     Dosage: 3600 MG, UNKNOWN
     Route: 064
     Dates: start: 20170804
  69. AMOXICILLINE                       /00249603/ [Suspect]
     Active Substance: AMOXICILLIN SODIUM
     Dosage: 1 UNK, UNKNOWN
     Route: 064
     Dates: start: 20170804, end: 20170811
  70. INSULIN [Suspect]
     Active Substance: INSULIN NOS
     Indication: TYPE 2 DIABETES MELLITUS
     Dosage: UNK
     Route: 064
     Dates: start: 20161230, end: 20170224
  71. PROPANOLOL HYDROCHLORIDE [Suspect]
     Active Substance: PROPRANOLOL HYDROCHLORIDE
     Indication: HYPERTENSION
     Dosage: 80 MG, DAILY
     Route: 064
     Dates: start: 20170516
  72. PROPANOLOL HYDROCHLORIDE [Suspect]
     Active Substance: PROPRANOLOL HYDROCHLORIDE
     Dosage: 25 MG, DAILY
     Route: 064
     Dates: start: 20170720
  73. MACROGOL BIOGARAN [Suspect]
     Active Substance: POLYETHYLENE GLYCOLS
     Indication: CONSTIPATION
     Dosage: 1 DF, DAILY
     Route: 064
     Dates: start: 20160930, end: 20170405
  74. CALCIUM FOLINATE [Suspect]
     Active Substance: LEUCOVORIN CALCIUM
     Indication: NORMOCHROMIC NORMOCYTIC ANAEMIA
     Dosage: 5 MG, DAILY
     Route: 064
     Dates: start: 20170224, end: 20170513
  75. ARIPIPRAZOLE. [Suspect]
     Active Substance: ARIPIPRAZOLE
     Indication: BIPOLAR I DISORDER
     Dosage: 10 MG, DAILY
     Route: 064
     Dates: start: 20160930, end: 20170224
  76. RAMIPRIL. [Suspect]
     Active Substance: RAMIPRIL
     Indication: HYPERTENSION
     Dosage: 2.5 MG, DAILY
     Route: 064
     Dates: start: 20160930, end: 20170224
  77. GLICLAZIDE [Suspect]
     Active Substance: GLICLAZIDE
     Indication: TYPE 2 DIABETES MELLITUS
     Dosage: 120 MG, DAILY
     Route: 064
     Dates: start: 20160930, end: 20170224
  78. LABETALOL HCL [Suspect]
     Active Substance: LABETALOL HYDROCHLORIDE
     Indication: HYPERTENSION
     Dosage: 80 MG, DAILY
     Route: 064
     Dates: start: 20170516, end: 20170914
  79. NICARDIPINE HYDROCHLORIDE. [Suspect]
     Active Substance: NICARDIPINE HYDROCHLORIDE
     Indication: HYPERTENSION
     Dosage: 50 MG, BID
     Route: 064
     Dates: start: 20170405
  80. NICARDIPINE HYDROCHLORIDE. [Suspect]
     Active Substance: NICARDIPINE HYDROCHLORIDE
     Dosage: 50 MG, UNKNOWN
     Route: 064
     Dates: start: 20170405, end: 20170914
  81. TARDYFERON [Suspect]
     Active Substance: FERROUS SULFATE
     Indication: NORMOCHROMIC NORMOCYTIC ANAEMIA
     Dosage: 1 DF, DAILY
     Route: 064
     Dates: start: 20170313, end: 20170914
  82. LANTUS [Suspect]
     Active Substance: INSULIN GLARGINE
     Dosage: 20 MG, DAILY
     Route: 064
     Dates: start: 20170224, end: 20170914
  83. LARGACTIL                          /00011901/ [Suspect]
     Active Substance: CHLORPROMAZINE
     Indication: BIPOLAR I DISORDER
     Dosage: 25 MG, DAILY
     Route: 064
     Dates: start: 20170720
  84. LARGACTIL                          /00011901/ [Suspect]
     Active Substance: CHLORPROMAZINE
     Indication: HYPERTENSION
     Dosage: 0.5 DF, UNKNOWN
     Route: 064
  85. NICOPATCH [Suspect]
     Active Substance: NICOTINE
     Dosage: 7 MG, DAILY
     Route: 064
     Dates: start: 20170224, end: 20170516
  86. AMOXICILLINE                       /00249603/ [Suspect]
     Active Substance: AMOXICILLIN SODIUM
     Dosage: 1 UNK, UNKNOWN
     Route: 064
     Dates: start: 20170804, end: 20170811
  87. FOLINIC ACID [Suspect]
     Active Substance: LEUCOVORIN
     Dosage: 5 MG, DAILY
     Route: 064
     Dates: start: 20170224, end: 20170914
  88. INSULIN PORCINE [Suspect]
     Active Substance: INSULIN PORK\INSULIN PURIFIED PORK
     Indication: TYPE 2 DIABETES MELLITUS
     Dosage: UNK, UNKNOWN
     Route: 064
     Dates: start: 20160930, end: 20170224
  89. CHLORPROMAZINE HYDROCHLORIDE. [Suspect]
     Active Substance: CHLORPROMAZINE HYDROCHLORIDE
     Indication: BIPOLAR I DISORDER
     Dosage: 25 MG, DAILY
     Route: 064
     Dates: start: 20170720
  90. GLICLAZIDE [Suspect]
     Active Substance: GLICLAZIDE
     Dosage: 120 MG, DAILY
     Route: 064
     Dates: start: 20170224
  91. NICARDIPINE HYDROCHLORIDE. [Suspect]
     Active Substance: NICARDIPINE HYDROCHLORIDE
     Indication: HYPERTENSION
     Dosage: 50 MG, BID
     Route: 064
     Dates: start: 20170405
  92. NICARDIPINE HYDROCHLORIDE. [Suspect]
     Active Substance: NICARDIPINE HYDROCHLORIDE
     Dosage: UNK, UNKNOWN
     Route: 064
     Dates: start: 20170516
  93. LOXEN                              /00639802/ [Suspect]
     Active Substance: NICARDIPINE HYDROCHLORIDE
     Dosage: 50 MG, BID
     Route: 065
     Dates: start: 20170405, end: 20170914
  94. LAROXYL [Suspect]
     Active Substance: AMITRIPTYLINE HYDROCHLORIDE
     Indication: DIABETIC NEUROPATHY
     Dosage: 2 DF, DAILY
     Route: 064
     Dates: start: 20160930, end: 20170914
  95. LAROXYL [Suspect]
     Active Substance: AMITRIPTYLINE HYDROCHLORIDE
     Dosage: 2 DF, ONCE DAILY (QD)
     Dates: start: 20160930
  96. NICOPATCH [Suspect]
     Active Substance: NICOTINE
     Indication: EX-TOBACCO USER
     Dosage: 7 MG, DAILY
     Route: 064
     Dates: start: 20170224, end: 20170914
  97. NICOPATCH [Suspect]
     Active Substance: NICOTINE
     Indication: EX-TOBACCO USER
     Dosage: 7 MG, DAILY
     Route: 064
     Dates: start: 20170224, end: 20170914
  98. NICOPATCH [Suspect]
     Active Substance: NICOTINE
     Dosage: 7 MG, DAILY
     Route: 064
     Dates: start: 20170224, end: 20170516
  99. AMOXICILLINE                       /00249603/ [Suspect]
     Active Substance: AMOXICILLIN SODIUM
     Dosage: 1 G, DAILY
     Route: 064
     Dates: start: 201708, end: 20170914
  100. INSULIN PORCINE [Suspect]
     Active Substance: INSULIN PORK\INSULIN PURIFIED PORK
     Indication: TYPE 2 DIABETES MELLITUS
     Dosage: UNK, UNKNOWN
     Route: 064
     Dates: start: 20160930, end: 20170224
  101. METFORMIN [Suspect]
     Active Substance: METFORMIN HYDROCHLORIDE
     Dosage: 850 MG, DAILY
     Route: 064
     Dates: start: 20160930, end: 20170224
  102. METFORMIN [Suspect]
     Active Substance: METFORMIN HYDROCHLORIDE
     Dosage: 850 MG, DAILY
     Route: 064
     Dates: start: 20170224
  103. FORLAX [Suspect]
     Active Substance: POLYETHYLENE GLYCOL 4000
     Indication: TYPE 2 DIABETES MELLITUS
     Dosage: 1 DF, DAILY
     Route: 064
     Dates: start: 20170313
  104. LABETALOL HCL [Suspect]
     Active Substance: LABETALOL HYDROCHLORIDE
     Indication: HYPERTENSION
     Dosage: 80 MG, DAILY
     Route: 064
     Dates: start: 20170516, end: 20170914
  105. NICARDIPINE HYDROCHLORIDE. [Suspect]
     Active Substance: NICARDIPINE HYDROCHLORIDE
     Dosage: UNK, UNKNOWN
     Route: 064
     Dates: start: 20170516
  106. TARDYFERON [Suspect]
     Active Substance: FERROUS SULFATE
     Indication: NORMOCHROMIC NORMOCYTIC ANAEMIA
     Dosage: 1 DF, DAILY
     Route: 064
     Dates: start: 20170313, end: 20170914
  107. LOXEN                              /00639802/ [Suspect]
     Active Substance: NICARDIPINE HYDROCHLORIDE
     Dosage: 50 MG, BID
     Route: 065
     Dates: start: 20170405, end: 20170914
  108. METHYLDOPA MSD [Suspect]
     Active Substance: METHYLDOPA
     Indication: HYPERTENSION
     Dosage: 1500 MG, DAILY
     Route: 064
     Dates: start: 20170720
  109. METHYLDOPA MSD [Suspect]
     Active Substance: METHYLDOPA
     Dosage: 15000 MG, ONCE DAILY (QD)
     Route: 048
     Dates: start: 20170720
  110. METHYLDOPA MSD [Suspect]
     Active Substance: METHYLDOPA
     Dosage: 500 MG, DAILY
     Route: 064
     Dates: start: 20170720
  111. LANTUS [Suspect]
     Active Substance: INSULIN GLARGINE
     Dosage: 20 MG, DAILY
     Route: 064
     Dates: start: 20170224, end: 20170914
  112. GABAPENTINE [Suspect]
     Active Substance: GABAPENTIN
     Indication: DIABETIC NEUROPATHY
     Dosage: 800 MG, DAILY
     Route: 064
     Dates: start: 20160930
  113. AMOXICILLINE                       /00249603/ [Suspect]
     Active Substance: AMOXICILLIN SODIUM
     Dosage: 3 G, DAILY
     Route: 064
     Dates: start: 20170804, end: 20170804
  114. FOLINIC ACID [Suspect]
     Active Substance: LEUCOVORIN
     Dosage: 5 MG, DAILY
     Route: 064
     Dates: start: 20170224, end: 20170914
  115. CHLORPROMAZINE HYDROCHLORIDE. [Suspect]
     Active Substance: CHLORPROMAZINE HYDROCHLORIDE
     Indication: BIPOLAR I DISORDER
     Dosage: 25 MG, DAILY
     Route: 064
     Dates: start: 20170720
  116. FORLAX [Suspect]
     Active Substance: POLYETHYLENE GLYCOL 4000
     Indication: NORMOCHROMIC NORMOCYTIC ANAEMIA
     Dosage: 120 MG, DAILY
     Route: 064
     Dates: start: 20160930, end: 20170224
  117. RAMIPRIL. [Suspect]
     Active Substance: RAMIPRIL
     Indication: HYPERTENSION
     Dosage: 2.5 MG, DAILY
     Route: 064
     Dates: start: 20160930, end: 20170224
  118. RAMIPRIL. [Suspect]
     Active Substance: RAMIPRIL
     Dosage: 2.5 MG, DAILY
     Route: 064
     Dates: start: 20170224
  119. FOLIC ACID. [Suspect]
     Active Substance: FOLIC ACID
     Indication: NORMOCHROMIC NORMOCYTIC ANAEMIA
     Dosage: 5 MG, DAILY
     Route: 064
     Dates: start: 20170224, end: 20170313
  120. NICARDIPINE HYDROCHLORIDE. [Suspect]
     Active Substance: NICARDIPINE HYDROCHLORIDE
     Dosage: 50 MG, UNKNOWN
     Route: 064
     Dates: start: 20170313
  121. NICARDIPINE HYDROCHLORIDE. [Suspect]
     Active Substance: NICARDIPINE HYDROCHLORIDE
     Dosage: 50 MG, UNKNOWN
     Route: 064
     Dates: start: 20170313
  122. LANTUS [Suspect]
     Active Substance: INSULIN GLARGINE
     Indication: TYPE 2 DIABETES MELLITUS
     Dosage: 20 IU, DAILY
     Route: 064
     Dates: start: 20170224, end: 20170914
  123. LASIX [Suspect]
     Active Substance: FUROSEMIDE
     Indication: HYPERTENSION
     Dosage: 40 MG, UNKNOWN
     Route: 064
     Dates: start: 20170516
  124. GABAPENTINE [Suspect]
     Active Substance: GABAPENTIN
     Indication: DIABETIC NEUROPATHY
     Dosage: 800 MG, DAILY
     Route: 064
     Dates: start: 20160930
  125. AMOXICILLINE                       /00249603/ [Suspect]
     Active Substance: AMOXICILLIN SODIUM
     Indication: PRODUCT USED FOR UNKNOWN INDICATION
     Dosage: 3 G, DAILY
     Route: 064
     Dates: start: 20170804, end: 20170811
  126. PROPANOLOL HYDROCHLORIDE [Suspect]
     Active Substance: PROPRANOLOL HYDROCHLORIDE
     Indication: HYPERTENSION
     Dosage: 80 MG, DAILY
     Route: 064
     Dates: start: 20170516
  127. MACROGOL BIOGARAN [Suspect]
     Active Substance: POLYETHYLENE GLYCOLS
     Indication: CONSTIPATION
     Dosage: 1 DF, DAILY
     Route: 064
     Dates: start: 20160930, end: 20170405
  128. CALCIUM FOLINATE [Suspect]
     Active Substance: LEUCOVORIN CALCIUM
     Indication: NORMOCHROMIC NORMOCYTIC ANAEMIA
     Dosage: 5 MG, DAILY
     Route: 064
     Dates: start: 20170224, end: 20170513

REACTIONS (5)
  - Foetal disorder [Unknown]
  - Low birth weight baby [Unknown]
  - Neutropenia neonatal [Not Recovered/Not Resolved]
  - Premature baby [Unknown]
  - Foetal exposure during pregnancy [Recovered/Resolved]

NARRATIVE: CASE EVENT DATE: 201709
